FAERS Safety Report 9039203 (Version 1)
Quarter: 2013Q2

REPORT INFORMATION
  Report Type: Spontaneous
  Country: US (occurrence: None)
  Receive Date: 20130123
  Receipt Date: 20130123
  Transmission Date: 20140414
  Serious: Yes (Life-Threatening, Hospitalization)
  Sender: FDA-Public Use
  Company Number: None

PATIENT
  Age: 84 Year
  Sex: Female
  Weight: 28.35 kg

DRUGS (3)
  1. TEMOZOLOMIDE [Suspect]
     Indication: MALIGNANT MELANOMA
     Dosage: ONCE DAILY X5
     Dates: start: 20121212, end: 20121216
  2. TEMOZOLOMIDE [Suspect]
     Indication: MALIGNANT MELANOMA
     Dosage: ONCE DAILY X5
  3. SENNA-DOCUSATE SODIUM [Concomitant]

REACTIONS (4)
  - Thrombocytopenia [None]
  - Febrile neutropenia [None]
  - White blood cell count decreased [None]
  - Urinary tract infection [None]
